FAERS Safety Report 19255645 (Version 1)
Quarter: 2021Q2

REPORT INFORMATION
  Report Type: Report from Study
  Country: GB (occurrence: GB)
  Receive Date: 20210514
  Receipt Date: 20210514
  Transmission Date: 20210717
  Serious: Yes (Hospitalization)
  Sender: FDA-Public Use
  Company Number: GB-ASTRAZENECA-2015SF24868

PATIENT
  Sex: Male

DRUGS (9)
  1. CYCLIZINE [Concomitant]
     Active Substance: CYCLIZINE
     Indication: NAUSEA
     Dosage: 50.0MG AS REQUIRED
     Route: 048
     Dates: start: 20151119
  2. OXYCODONE [Concomitant]
     Active Substance: OXYCODONE
     Indication: PAIN
     Route: 048
     Dates: start: 20151130, end: 20151207
  3. AZD2281 [Suspect]
     Active Substance: OLAPARIB
     Indication: SMALL CELL LUNG CANCER
     Route: 048
     Dates: start: 20151006, end: 20151117
  4. OXYCODONE [Concomitant]
     Active Substance: OXYCODONE
     Indication: PAIN
     Dosage: 10.0MG AS REQUIRED
     Route: 048
     Dates: start: 20151130, end: 20151207
  5. CO CALCIFEROL [Concomitant]
     Indication: PAIN
     Dosage: 30 / 500 MG THREE TIMES A DAY
     Route: 048
     Dates: start: 201510, end: 20151029
  6. PARACETAMOL [Concomitant]
     Active Substance: ACETAMINOPHEN
     Indication: PAIN
     Route: 048
     Dates: start: 201510, end: 20151207
  7. MOVICOL [Concomitant]
     Active Substance: POLYETHYLENE GLYCOL 3350\POTASSIUM CHLORIDE\SODIUM BICARBONATE\SODIUM CHLORIDE
     Indication: CONSTIPATION
     Route: 048
     Dates: start: 20151130, end: 20151207
  8. LIDOCAINE. [Concomitant]
     Active Substance: LIDOCAINE
     Indication: PAIN
     Dosage: 10.0MG AS REQUIRED
     Route: 061
     Dates: start: 20151130, end: 20151207
  9. ONDANESTRON [Concomitant]
     Indication: NAUSEA
     Dosage: 8.0MG AS REQUIRED
     Route: 048
     Dates: start: 20151119, end: 20151123

REACTIONS (3)
  - Dyspnoea [Not Recovered/Not Resolved]
  - Nausea [Unknown]
  - Flank pain [Unknown]

NARRATIVE: CASE EVENT DATE: 201511
